FAERS Safety Report 18378052 (Version 4)
Quarter: 2020Q4

REPORT INFORMATION
  Report Type: Report from Study
  Country: CA (occurrence: CA)
  Receive Date: 20201013
  Receipt Date: 20201105
  Transmission Date: 20210114
  Serious: Yes (Other)
  Sender: FDA-Public Use
  Company Number: CA-JNJFOC-20201007156

PATIENT
  Age: 39 Year
  Sex: Female

DRUGS (2)
  1. STELARA [Suspect]
     Active Substance: USTEKINUMAB
     Indication: HIDRADENITIS
     Route: 058
     Dates: start: 20191217
  2. STELARA [Suspect]
     Active Substance: USTEKINUMAB

REACTIONS (5)
  - Systemic infection [Unknown]
  - Hidradenitis [Unknown]
  - Cellulitis [Not Recovered/Not Resolved]
  - Pneumonia [Unknown]
  - Therapeutic response decreased [Unknown]

NARRATIVE: CASE EVENT DATE: 20201002
